FAERS Safety Report 12422931 (Version 1)
Quarter: 2016Q2

REPORT INFORMATION
  Report Type: Spontaneous
  Country: US (occurrence: None)
  Receive Date: 20160531
  Receipt Date: 20160531
  Transmission Date: 20160815
  Serious: Yes (Other)
  Sender: FDA-Public Use
  Company Number: None

PATIENT
  Age: 16 Year
  Sex: Male
  Weight: 86.18 kg

DRUGS (1)
  1. MINOCIN [Suspect]
     Active Substance: MINOCYCLINE HYDROCHLORIDE
     Indication: ACNE
     Dates: start: 19820101, end: 19830401

REACTIONS (3)
  - Autoimmune disorder [None]
  - Joint swelling [None]
  - Diabetes mellitus [None]

NARRATIVE: CASE EVENT DATE: 19830201
